FAERS Safety Report 4513732-1 (Version None)
Quarter: 2004Q4

REPORT INFORMATION
  Report Type: 
  Country: None (occurrence: None)
  Receive Date: 20041130
  Receipt Date: 20040907
  Transmission Date: 20050328
  Serious: No
  Sender: FDA-Public Use
  Company Number: US-GLAXOSMITHKLINE-A0524728A

PATIENT
  Age: 54 Year
  Sex: Female

DRUGS (2)
  1. WELLBUTRIN XL [Suspect]
     Dosage: 150MG PER DAY
     Route: 048
     Dates: start: 20040902, end: 20040904
  2. LITHIUM [Concomitant]

REACTIONS (4)
  - ANXIETY [None]
  - MYALGIA [None]
  - PANIC ATTACK [None]
  - PYREXIA [None]
